FAERS Safety Report 22270751 (Version 2)
Quarter: 2023Q2

REPORT INFORMATION
  Report Type: Spontaneous
  Country: US (occurrence: US)
  Receive Date: 20230501
  Receipt Date: 20230505
  Transmission Date: 20230722
  Serious: No
  Sender: FDA-Public Use
  Company Number: US-SANOFI-01588880

PATIENT

DRUGS (1)
  1. CAPSAICIN [Suspect]
     Active Substance: CAPSAICIN
     Dosage: UNK

REACTIONS (3)
  - Eye irritation [Unknown]
  - Oral discomfort [Unknown]
  - Burning sensation [Unknown]
